FAERS Safety Report 17577902 (Version 2)
Quarter: 2020Q1

REPORT INFORMATION
  Report Type: Spontaneous
  Country: TW (occurrence: TW)
  Receive Date: 20200324
  Receipt Date: 20200325
  Transmission Date: 20200409
  Serious: Yes (Hospitalization, Other)
  Sender: FDA-Public Use
  Company Number: TW-PFIZER INC-2020123005

PATIENT
  Age: 57 Year
  Sex: Male

DRUGS (5)
  1. CEFMETAZOLE [Concomitant]
     Active Substance: CEFMETAZOLE
     Indication: URINARY TRACT INFECTION
     Dosage: 2000 MG, EVERY 12 HOURS
     Route: 042
  2. MOXIFLOXACIN. [Concomitant]
     Active Substance: MOXIFLOXACIN
     Indication: EVIDENCE BASED TREATMENT
     Dosage: UNK
  3. PIPERACILLIN/TAZOBACTAM [Suspect]
     Active Substance: PIPERACILLIN SODIUM\TAZOBACTAM SODIUM
     Indication: EVIDENCE BASED TREATMENT
     Dosage: 4 G/0.5 G, EVERY 8 HOURS (NINE DOSES)
  4. CEFTRIAXONE. [Concomitant]
     Active Substance: CEFTRIAXONE
     Indication: EVIDENCE BASED TREATMENT
     Dosage: UNK
  5. COBICISTAT/ELVITEGRAVIR/EMTRICITABINE/TENOFOVIR ALAFENAMIDE [Concomitant]
     Active Substance: COBICISTAT\ELVITEGRAVIR\EMTRICITABINE\TENOFOVIR
     Indication: ACQUIRED IMMUNODEFICIENCY SYNDROME
     Dosage: UNK

REACTIONS (2)
  - Urine potassium increased [Recovered/Resolved]
  - Hypokalaemia [Recovered/Resolved]
